FAERS Safety Report 9465473 (Version 1)
Quarter: 2013Q3

REPORT INFORMATION
  Report Type: Spontaneous
  Country: IE (occurrence: IE)
  Receive Date: 20130820
  Receipt Date: 20130820
  Transmission Date: 20140515
  Serious: Yes (Hospitalization)
  Sender: FDA-Public Use
  Company Number: IE-AMGEN-USASP2013057948

PATIENT
  Age: 66 Year
  Sex: Female

DRUGS (2)
  1. NEULASTA [Suspect]
     Indication: OVARIAN CANCER
     Dosage: 6 MG 10.6M/S, POST CHEMOTHERAPY MONTHLY
     Route: 058
     Dates: start: 20130724
  2. CHEMOTHERAPEUTICS [Concomitant]
     Indication: OVARIAN CANCER
     Dosage: UNK

REACTIONS (2)
  - Pyrexia [Recovered/Resolved]
  - White blood cell count decreased [Recovered/Resolved]
